FAERS Safety Report 5531272-8 (Version None)
Quarter: 2007Q4

REPORT INFORMATION
  Report Type: 
  Country: None (occurrence: None)
  Receive Date: 20071127
  Receipt Date: 20071114
  Transmission Date: 20080405
  Serious: Yes (Hospitalization)
  Sender: FDA-Public Use
  Company Number: TH-JNJFOC-20071006902

PATIENT
  Sex: Female

DRUGS (3)
  1. DECITABINE (DECITABINE) LYOPHILIZED POWDER [Suspect]
     Indication: MYELODYSPLASTIC SYNDROME
     Dosage: 29 MG, INTRAVENOUS; 29 MG, INTRAVENOUS
     Route: 042
     Dates: start: 20070815, end: 20070819
  2. DECITABINE (DECITABINE) LYOPHILIZED POWDER [Suspect]
     Indication: MYELODYSPLASTIC SYNDROME
     Dosage: 29 MG, INTRAVENOUS; 29 MG, INTRAVENOUS
     Route: 042
     Dates: start: 20070912, end: 20070916
  3. SODAMINT (SODIUM BICARBONATE) UNSPECIFIED) [Concomitant]

REACTIONS (7)
  - ABDOMINAL PAIN [None]
  - COLITIS [None]
  - DIARRHOEA [None]
  - HYPOTENSION [None]
  - NEUTROPHIL COUNT DECREASED [None]
  - PYREXIA [None]
  - WHITE BLOOD CELL COUNT DECREASED [None]
